FAERS Safety Report 8170454-6 (Version None)
Quarter: 2012Q1

REPORT INFORMATION
  Report Type: 
  Country: None (occurrence: None)
  Receive Date: 20120104
  Receipt Date: 20111115
  Transmission Date: 20120608
  Serious: No
  Sender: FDA-Public Use
  Company Number: 2011HGS-002801

PATIENT
  Age: 51 Year
  Sex: Female

DRUGS (8)
  1. PLAQUENIL (HYDROXYCHLOROQUINE SULFATE)(HYDROXYCHLOROQUINE SULFATE) [Concomitant]
  2. BENICAR [Concomitant]
  3. SOMA(CARISOPRODOL)(CARISOPRODOL) [Concomitant]
  4. GABAPENTIN [Concomitant]
  5. CYMBALTA (ANTIDEPRESSANTS) (DULOXETINE) [Concomitant]
  6. BENLYSTA [Suspect]
     Indication: SYSTEMIC LUPUS ERYTHEMATOSUS
     Dosage: 1 IN 28 D, INTRAVENOUS DRIP
     Route: 041
     Dates: start: 20110901
  7. CELLCEPT(MYCOPHENOLATE MOFETIL)(MYCOPHENOLATE MOFETIL) [Concomitant]
  8. SYNTHROID(LEVOTHYROXINE SODIUM)(LEVOTHYROXINE SODIUM) [Concomitant]

REACTIONS (1)
  - NAUSEA [None]
